FAERS Safety Report 10934419 (Version 2)
Quarter: 2015Q2

REPORT INFORMATION
  Report Type: Spontaneous
  Country: US (occurrence: US)
  Receive Date: 20150320
  Receipt Date: 20150420
  Transmission Date: 20150821
  Serious: No
  Sender: FDA-Public Use
  Company Number: US-ASTRAZENECA-2015SE22689

PATIENT
  Sex: Male
  Weight: 97.1 kg

DRUGS (1)
  1. BRILINTA [Suspect]
     Active Substance: TICAGRELOR
     Indication: STENT PLACEMENT
     Route: 048
     Dates: start: 20150216

REACTIONS (4)
  - Lethargy [Unknown]
  - Peripheral coldness [Unknown]
  - Dyspnoea [Unknown]
  - Decreased appetite [Unknown]
